FAERS Safety Report 6045377-9 (Version None)
Quarter: 2009Q1

REPORT INFORMATION
  Report Type: 
  Country: None (occurrence: None)
  Receive Date: 20090121
  Receipt Date: 20090113
  Transmission Date: 20090719
  Serious: Yes (Other)
  Sender: FDA-Public Use
  Company Number: BR-BAYER-200911219LA

PATIENT
  Age: 34 Year
  Sex: Female
  Weight: 55 kg

DRUGS (3)
  1. GYNERA [Suspect]
     Indication: CONTRACEPTION
     Route: 048
  2. YASMIN [Suspect]
     Indication: CONTRACEPTION
     Route: 048
     Dates: start: 20060101, end: 20060401
  3. MIRENA [Suspect]
     Indication: MENSTRUAL DISORDER
     Route: 015
     Dates: start: 20081127

REACTIONS (7)
  - BREAST DISCHARGE [None]
  - FLUID RETENTION [None]
  - HEADACHE [None]
  - MENORRHAGIA [None]
  - SOMNOLENCE [None]
  - VAGINAL DISCHARGE [None]
  - WEIGHT INCREASED [None]
